FAERS Safety Report 14093148 (Version 1)
Quarter: 2017Q4

REPORT INFORMATION
  Report Type: Spontaneous
  Country: FR (occurrence: FR)
  Receive Date: 20171016
  Receipt Date: 20171016
  Transmission Date: 20180321
  Serious: Yes (Hospitalization)
  Sender: FDA-Public Use
  Company Number: FR-SA-2017SA197965

PATIENT
  Age: 47 Year
  Sex: Female

DRUGS (6)
  1. INEXIUM [Concomitant]
     Active Substance: ESOMEPRAZOLE
  2. IMOVANE [Suspect]
     Active Substance: ZOPICLONE
     Indication: INTENTIONAL PRODUCT MISUSE
     Route: 048
     Dates: start: 20170903, end: 20170903
  3. RUBOZINC [Suspect]
     Active Substance: ZINC GLUCONATE
     Indication: INTENTIONAL PRODUCT MISUSE
     Route: 048
     Dates: start: 20170903, end: 20170903
  4. STILNOX [Suspect]
     Active Substance: ZOLPIDEM TARTRATE
     Indication: INTENTIONAL PRODUCT MISUSE
     Route: 048
     Dates: start: 20170903, end: 20170903
  5. SURMONTIL [Suspect]
     Active Substance: TRIMIPRAMINE MALEATE
     Indication: INTENTIONAL PRODUCT MISUSE
     Route: 048
     Dates: start: 20170903, end: 20170903
  6. LEVOTHYROX [Concomitant]
     Active Substance: LEVOTHYROXINE

REACTIONS (5)
  - Dysphagia [Recovering/Resolving]
  - Pneumonia aspiration [Recovering/Resolving]
  - Altered state of consciousness [Recovering/Resolving]
  - Intentional overdose [Unknown]
  - Intentional product misuse [Unknown]

NARRATIVE: CASE EVENT DATE: 20170903
